FAERS Safety Report 5737207-7 (Version None)
Quarter: 2008Q2

REPORT INFORMATION
  Report Type: 
  Country: None (occurrence: None)
  Receive Date: 20080514
  Receipt Date: 20080507
  Transmission Date: 20081010
  Serious: Yes (Hospitalization)
  Sender: FDA-Public Use
  Company Number: US-TEVA-171244USA

PATIENT
  Sex: Female

DRUGS (5)
  1. ATENOLOL [Suspect]
     Indication: ARRHYTHMIA
     Route: 048
  2. ATENOLOL [Suspect]
     Indication: SINUS TACHYCARDIA
  3. JANUVIA [Suspect]
     Dates: start: 20080423
  4. LOTREL [Concomitant]
     Indication: HYPERTENSION
  5. INSULIN [Concomitant]
     Indication: DIABETES MELLITUS

REACTIONS (3)
  - BLOOD GLUCOSE DECREASED [None]
  - ROAD TRAFFIC ACCIDENT [None]
  - SYNCOPE [None]
